FAERS Safety Report 10924874 (Version 2)
Quarter: 2015Q2

REPORT INFORMATION
  Report Type: Spontaneous
  Country: US (occurrence: US)
  Receive Date: 20150318
  Receipt Date: 20150524
  Transmission Date: 20150821
  Serious: No
  Sender: FDA-Public Use
  Company Number: US-JNJFOC-20131017565

PATIENT
  Sex: Female

DRUGS (2)
  1. NIZORAL A-D [Suspect]
     Active Substance: KETOCONAZOLE
     Route: 061
  2. NIZORAL A-D [Suspect]
     Active Substance: KETOCONAZOLE
     Indication: DANDRUFF
     Dosage: REGULAR AMOUNT LIKE SHAMPOO??EVERY 3 TO 4 DAYS
     Route: 061
     Dates: start: 20130924, end: 20131025

REACTIONS (3)
  - Eye irritation [Unknown]
  - Lip swelling [Unknown]
  - Alopecia [Recovering/Resolving]
